FAERS Safety Report 4541093-0 (Version None)
Quarter: 2004Q4

REPORT INFORMATION
  Report Type: 
  Country: None (occurrence: None)
  Receive Date: 20041228
  Receipt Date: 20041214
  Transmission Date: 20050328
  Serious: Yes (Hospitalization)
  Sender: FDA-Public Use
  Company Number: F04200400306

PATIENT
  Age: 70 Year
  Sex: Female

DRUGS (10)
  1. ELOXATIN [Suspect]
     Indication: COLON CANCER
     Dosage: 82.7 MG/M2 OTHER (CUMULATIVE DOSE : 496.3 MG/M2)
     Route: 050
     Dates: start: 20040823, end: 20040823
  2. ELOXATIN [Suspect]
     Indication: METASTASES TO LIVER
     Dosage: 82.7 MG/M2 OTHER (CUMULATIVE DOSE : 496.3 MG/M2)
     Route: 050
     Dates: start: 20040823, end: 20040823
  3. ELOXATIN [Suspect]
     Indication: METASTASES TO LUNG
     Dosage: 82.7 MG/M2 OTHER (CUMULATIVE DOSE : 496.3 MG/M2)
     Route: 050
     Dates: start: 20040823, end: 20040823
  4. ELOXATIN [Suspect]
     Indication: METASTASES TO PERITONEUM
     Dosage: 82.7 MG/M2 OTHER (CUMULATIVE DOSE : 496.3 MG/M2)
     Route: 050
     Dates: start: 20040823, end: 20040823
  5. FLUOROURACIL [Suspect]
     Indication: COLON CANCER
     Dosage: INTRAVENOUS DRIP
     Route: 041
     Dates: start: 20040801, end: 20040801
  6. LEUCOVORIN - SOLUTION - UNIT DOSE : UNKNOWN [Suspect]
     Indication: COLON CANCER
     Dosage: INTRAVENOUS DRIP
     Route: 041
     Dates: start: 20040801, end: 20040801
  7. KEVATRIL (GRANISETRON HYDROCHLORIDE) [Concomitant]
  8. DEXAMETHASON (DEXAMETHASONE) [Concomitant]
  9. NEXIUM [Concomitant]
  10. ACETYLCYSTEINE [Concomitant]

REACTIONS (10)
  - CEREBROVASCULAR INSUFFICIENCY [None]
  - COLON CANCER METASTATIC [None]
  - EPILEPSY [None]
  - EXANTHEM [None]
  - INFUSION RELATED REACTION [None]
  - METASTASES TO LIVER [None]
  - METASTASES TO LUNG [None]
  - METASTASES TO PERITONEUM [None]
  - THROAT IRRITATION [None]
  - URINARY INCONTINENCE [None]
